FAERS Safety Report 18620354 (Version 1)
Quarter: 2020Q4

REPORT INFORMATION
  Report Type: Spontaneous
  Country: FR (occurrence: FR)
  Receive Date: 20201215
  Receipt Date: 20201215
  Transmission Date: 20210114
  Serious: Yes (Other)
  Sender: FDA-Public Use
  Company Number: NVSC2020FR326952

PATIENT

DRUGS (2)
  1. CEFTRIAXONE SODIUM. [Suspect]
     Active Substance: CEFTRIAXONE SODIUM
     Indication: INFECTION
     Dosage: 1 DF
     Route: 042
     Dates: start: 20201101
  2. CEFTRIAXONE SODIUM. [Suspect]
     Active Substance: CEFTRIAXONE SODIUM
     Dosage: 1 DF (LIDOCAINE NON ADMINISTRE) (DATE AND TIME OF LAST ADMINISTRATION: 01 NOV 2020)
     Route: 030
     Dates: start: 20201101

REACTIONS (1)
  - Product dispensing error [Recovered/Resolved]

NARRATIVE: CASE EVENT DATE: 20201101
